FAERS Safety Report 5292526-6 (Version None)
Quarter: 2007Q2

REPORT INFORMATION
  Report Type: 
  Country: None (occurrence: None)
  Receive Date: 20070410
  Receipt Date: 20070327
  Transmission Date: 20071010
  Serious: Yes (Hospitalization)
  Sender: FDA-Public Use
  Company Number: US-AMGEN-US217337

PATIENT
  Sex: Male

DRUGS (2)
  1. ENBREL [Suspect]
     Indication: PSORIASIS
     Route: 030
  2. UNSPECIFIED NUTRITIONAL SUPPLEMENT [Concomitant]

REACTIONS (2)
  - RENAL FAILURE [None]
  - TOXIC SHOCK SYNDROME STREPTOCOCCAL [None]
